FAERS Safety Report 5151922-8 (Version None)
Quarter: 2006Q4

REPORT INFORMATION
  Report Type: 
  Country: None (occurrence: None)
  Receive Date: 20061102
  Receipt Date: 20061023
  Transmission Date: 20070319
  Serious: Yes (Other)
  Sender: FDA-Public Use
  Company Number: 200610328BBE

PATIENT
  Age: 4 Month
  Sex: Female

DRUGS (3)
  1. PLASBUMIN-25 [Suspect]
     Dosage: 16 ML TOTAL DAILY
     Dates: start: 20061014
  2. PLASBUMIN-25 [Suspect]
     Dosage: 16 ML TOTAL DAILY
     Dates: start: 20061014
  3. PLASBUMIN-25 [Suspect]
     Dosage: 16 ML TOTAL DAILY
     Dates: start: 20061015

REACTIONS (1)
  - TRANSFUSION-RELATED ACUTE LUNG INJURY [None]
